FAERS Safety Report 7234207-5 (Version None)
Quarter: 2011Q1

REPORT INFORMATION
  Report Type: 
  Country: None (occurrence: None)
  Receive Date: 20110119
  Receipt Date: 20110117
  Transmission Date: 20110831
  Serious: Yes (Other)
  Sender: FDA-Public Use
  Company Number: DE-PFIZER INC-DE-WYE-H14073310

PATIENT
  Age: 79 Year
  Sex: Female

DRUGS (7)
  1. QUETIAPINE [Suspect]
     Dosage: OVERDOSE AMOUNT UNKNOWN
     Route: 048
  2. PARACETAMOL [Suspect]
     Dosage: OVERDOSE AMOUNT UNKNOWN
     Route: 048
  3. CAFFEINE [Suspect]
     Dosage: OVERDOSE AMOUNT UNKNOWN
     Route: 048
  4. PREGABALIN [Suspect]
     Dosage: OVERDOSE AMOUNT UNKNOWN
     Route: 048
  5. PANTOZOL [Suspect]
     Dosage: 400 MG, SINGLE
     Route: 048
  6. ACETYLSALICYLIC ACID [Suspect]
     Dosage: OVERDOSE AMOUNT UNKNOWN
     Route: 048
  7. PIPAMPERONE [Suspect]
     Dosage: OVERDOSE AMOUNT UNKNOWN
     Route: 048

REACTIONS (6)
  - CONFUSIONAL STATE [None]
  - SOMNOLENCE [None]
  - TOXICITY TO VARIOUS AGENTS [None]
  - INTENTIONAL OVERDOSE [None]
  - SUICIDE ATTEMPT [None]
  - BODY TEMPERATURE DECREASED [None]
